FAERS Safety Report 9393362 (Version 1)
Quarter: 2013Q3

REPORT INFORMATION
  Report Type: Spontaneous
  Country: IT (occurrence: None)
  Receive Date: 20130705
  Receipt Date: 20130705
  Transmission Date: 20140515
  Serious: Yes (Other)
  Sender: FDA-Public Use
  Company Number: AUR-APL-2013-05658

PATIENT
  Sex: Female

DRUGS (1)
  1. METFORMIN (METFORMIN) [Suspect]
     Indication: PRODUCT USED FOR UNKNOWN INDICATION

REACTIONS (5)
  - Chest discomfort [None]
  - Disturbance in attention [None]
  - Dyspnoea [None]
  - Hypoglycaemia [None]
  - Syncope [None]
